FAERS Safety Report 6234424-7 (Version None)
Quarter: 2009Q2

REPORT INFORMATION
  Report Type: 
  Country: None (occurrence: None)
  Receive Date: 20090618
  Receipt Date: 20090608
  Transmission Date: 20091009
  Serious: No
  Sender: FDA-Public Use
  Company Number: US-ROCHE-635974

PATIENT
  Age: 25 Year
  Sex: Female

DRUGS (3)
  1. ISOTRETINOIN (NON-ROCHE/NON-COMPARATOR) [Suspect]
     Indication: DRUG USE FOR UNKNOWN INDICATION
     Dosage: DRUG NAME REPORTED AS SOTRET (RANBAXY)
     Route: 048
     Dates: start: 20090316
  2. ISOTRETINOIN (NON-ROCHE/NON-COMPARATOR) [Suspect]
     Dosage: DOSE INCREASED
     Route: 048
  3. ISOTRETINOIN (NON-ROCHE/NON-COMPARATOR) [Suspect]
     Dosage: DOSE DECREASED
     Route: 048
     Dates: end: 20090520

REACTIONS (2)
  - NO ADVERSE EVENT [None]
  - PREGNANCY [None]
